FAERS Safety Report 5911096-X (Version None)
Quarter: 2008Q4

REPORT INFORMATION
  Report Type: 
  Country: None (occurrence: None)
  Receive Date: 20081007
  Receipt Date: 20071116
  Transmission Date: 20090506
  Serious: No
  Sender: FDA-Public Use
  Company Number: US-BRISTOL-MYERS SQUIBB COMPANY-13986187

PATIENT
  Age: 81 Year
  Sex: Male

DRUGS (4)
  1. AVAPRO [Suspect]
     Indication: BLOOD PRESSURE
  2. TOPROL-XL [Suspect]
  3. NORVASC [Suspect]
  4. TERAZOSIN HCL [Suspect]

REACTIONS (1)
  - BLOOD PRESSURE INADEQUATELY CONTROLLED [None]
